FAERS Safety Report 9437294 (Version 2)
Quarter: 2014Q1

REPORT INFORMATION
  Report Type: Spontaneous
  Country: CH (occurrence: CH)
  Receive Date: 20130802
  Receipt Date: 20140303
  Transmission Date: 20141002
  Serious: Yes (Other)
  Sender: FDA-Public Use
  Company Number: PHHY2013CH080264

PATIENT
  Sex: Male

DRUGS (3)
  1. AMLODIPIN SANDOZ ECO [Suspect]
     Indication: HYPERTENSION
     Dates: start: 201304
  2. PHENYTOIN [Concomitant]
  3. ATACAND PLUS [Concomitant]

REACTIONS (2)
  - Sudden hearing loss [Unknown]
  - Hearing impaired [Unknown]
